FAERS Safety Report 13084729 (Version 1)
Quarter: 2017Q1

REPORT INFORMATION
  Report Type: Report from Study
  Country: JP (occurrence: JP)
  Receive Date: 20170104
  Receipt Date: 20170104
  Transmission Date: 20170428
  Serious: Yes (Hospitalization, Other)
  Sender: FDA-Public Use
  Company Number: JP-INCYTE CORPORATION-2015IN002821

PATIENT
  Age: 50 Year
  Sex: Female
  Weight: 48.3 kg

DRUGS (41)
  1. JAKAVI [Suspect]
     Active Substance: RUXOLITINIB
     Indication: MYELOFIBROSIS
     Dosage: 15 MG, BID
     Route: 048
     Dates: start: 20141202, end: 20141226
  2. JAKAVI [Suspect]
     Active Substance: RUXOLITINIB
     Dosage: 10 MG, BID
     Route: 048
     Dates: start: 20150203, end: 20150518
  3. LOXOPROFEN [Concomitant]
     Active Substance: LOXOPROFEN
     Dosage: 180 MG, UNK
     Route: 048
     Dates: end: 20150928
  4. NEXIUM [Concomitant]
     Active Substance: ESOMEPRAZOLE MAGNESIUM
     Indication: PRODUCT USED FOR UNKNOWN INDICATION
     Dosage: 20 MG, UNK
     Route: 048
  5. VALACICLOVIR [Concomitant]
     Active Substance: VALACYCLOVIR HYDROCHLORIDE
     Indication: PRODUCT USED FOR UNKNOWN INDICATION
     Dosage: 1000 MG, UNK
     Route: 048
  6. LASIX [Concomitant]
     Active Substance: FUROSEMIDE
     Indication: PRODUCT USED FOR UNKNOWN INDICATION
     Dosage: 10 MG, UNK
     Route: 048
     Dates: end: 20150717
  7. DIGOSIN [Concomitant]
     Active Substance: DIGOXIN
     Indication: CARDIAC FAILURE CHRONIC
     Dosage: 0.2 MG, UNK
     Route: 048
     Dates: end: 20160418
  8. SOLDEM 3A [Concomitant]
     Active Substance: CARBOHYDRATES\POTASSIUM CHLORIDE\SODIUM CHLORIDE\SODIUM LACTATE
     Indication: PRODUCT USED FOR UNKNOWN INDICATION
     Dosage: 500 ML, UNK
     Route: 065
     Dates: start: 20150306, end: 20150309
  9. HALFDIGOXIN [Concomitant]
     Active Substance: DIGOXIN
     Indication: PRODUCT USED FOR UNKNOWN INDICATION
     Dosage: 0.25 MG, UNK
     Route: 048
     Dates: start: 20151124, end: 20160106
  10. AZUNOL [Concomitant]
     Active Substance: SODIUM GUALENATE
     Indication: PRODUCT USED FOR UNKNOWN INDICATION
     Dosage: P.R.N.
     Route: 061
  11. JAKAVI [Suspect]
     Active Substance: RUXOLITINIB
     Dosage: 5 MG, BID
     Route: 048
     Dates: start: 20150120, end: 20150120
  12. FEXOFENADINE [Concomitant]
     Active Substance: FEXOFENADINE\FEXOFENADINE HYDROCHLORIDE
     Indication: PRODUCT USED FOR UNKNOWN INDICATION
     Dosage: 120 MG, UNK
     Route: 048
  13. FEBURIC [Concomitant]
     Active Substance: FEBUXOSTAT
     Indication: PRODUCT USED FOR UNKNOWN INDICATION
     Dosage: 20 MG, UNK
     Route: 048
  14. VALACICLOVIR [Concomitant]
     Active Substance: VALACYCLOVIR HYDROCHLORIDE
     Dosage: 500 MG, UNK
     Route: 048
  15. DIGOSIN [Concomitant]
     Active Substance: DIGOXIN
     Dosage: 0.2 MG, UNK
     Route: 048
     Dates: end: 20151123
  16. SAXIZON [Concomitant]
     Active Substance: HYDROCORTISONE SODIUM SUCCINATE
     Indication: PRODUCT USED FOR UNKNOWN INDICATION
     Dosage: 100 MG, UNK
     Route: 065
     Dates: start: 20150306, end: 20150306
  17. CALONAL [Concomitant]
     Active Substance: ACETAMINOPHEN
     Indication: MYELOFIBROSIS
     Dosage: 1600 MG, UNK
     Route: 048
     Dates: start: 20150915
  18. DEXALTIN [Concomitant]
     Active Substance: DEXAMETHASONE
     Indication: PRODUCT USED FOR UNKNOWN INDICATION
     Dosage: P.R.N.
     Route: 065
     Dates: start: 20160927
  19. JAKAVI [Suspect]
     Active Substance: RUXOLITINIB
     Dosage: 7.5 MG, BID
     Route: 048
     Dates: start: 20150602
  20. FENTOS [Suspect]
     Active Substance: FENTANYL
     Indication: MYELOFIBROSIS
     Dosage: 2 MG, UNK
     Route: 062
     Dates: end: 20150519
  21. SOLANAX [Concomitant]
     Active Substance: ALPRAZOLAM
     Indication: PRODUCT USED FOR UNKNOWN INDICATION
     Dosage: 2.4 MG, UNK
     Route: 048
     Dates: end: 20150914
  22. NOVAMIN [Concomitant]
     Active Substance: PROCHLORPERAZINE MALEATE
     Indication: PRODUCT USED FOR UNKNOWN INDICATION
     Dosage: 30 MG, UNK
     Route: 048
  23. AZULENE [Concomitant]
     Active Substance: AZULENE
     Indication: PHARYNGITIS
     Dosage: 1.5 G, UNK
     Route: 049
  24. ISOTONIC SODIUM CHLORIDE SOLUTION [Concomitant]
     Active Substance: SODIUM CHLORIDE
     Indication: PRODUCT USED FOR UNKNOWN INDICATION
     Dosage: 200 ML, UNK
     Route: 065
     Dates: start: 20150306, end: 20150312
  25. NAUZELIN [Concomitant]
     Active Substance: DOMPERIDONE
     Indication: PRODUCT USED FOR UNKNOWN INDICATION
     Dosage: 30 MG, UNK
     Route: 048
     Dates: end: 20150302
  26. MEIACT [Concomitant]
     Active Substance: CEFDITOREN PIVOXIL
     Indication: PRODUCT USED FOR UNKNOWN INDICATION
     Dosage: 300 MG, UNK
     Route: 048
     Dates: start: 20150303, end: 20150306
  27. THYRADIN-S [Concomitant]
     Active Substance: LEVOTHYROXINE
     Indication: THYROID ADENOMA
     Dosage: 50 UG, UNK
     Route: 048
  28. ANETOCAINE [Concomitant]
     Indication: PRODUCT USED FOR UNKNOWN INDICATION
     Dosage: UNK UNK, PRN
     Route: 065
     Dates: start: 20160830
  29. NEW LECICARBON [Concomitant]
     Active Substance: SODIUM BICARBONATE\SODIUM PHOSPHATE, MONOBASIC
     Indication: PRODUCT USED FOR UNKNOWN INDICATION
     Dosage: 1 DF, UNK
     Route: 054
     Dates: start: 20141226
  30. NEOSTELIN GREEN [Concomitant]
     Indication: PRODUCT USED FOR UNKNOWN INDICATION
     Dosage: P.R.N
     Route: 061
  31. ALPRAZOLAM. [Concomitant]
     Active Substance: ALPRAZOLAM
     Indication: PRODUCT USED FOR UNKNOWN INDICATION
     Dosage: 2.4 MG, UNK
     Route: 065
     Dates: start: 20150915
  32. XYLOCAINE [Concomitant]
     Active Substance: LIDOCAINE HYDROCHLORIDE
     Indication: PRODUCT USED FOR UNKNOWN INDICATION
     Dosage: UNK
     Route: 065
     Dates: start: 20160613
  33. OXINORM [Suspect]
     Active Substance: OXYCODONE HYDROCHLORIDE
     Indication: MYELOFIBROSIS
     Dosage: 5 MG, UNK
     Route: 048
  34. NOVAMIN [Concomitant]
     Active Substance: PROCHLORPERAZINE MALEATE
     Dosage: 30 MG, UNK
     Route: 048
     Dates: start: 20150721
  35. LOXOPROFEN [Concomitant]
     Active Substance: LOXOPROFEN
     Indication: MYELOFIBROSIS
     Dosage: 180 MG, UNK
     Route: 048
     Dates: end: 20161121
  36. BIOFERMIN R [Concomitant]
     Active Substance: BACILLUS SUBTILIS\LACTOBACILLUS ACIDOPHILUS\STREPTOCOCCUS FAECAIS
     Indication: PRODUCT USED FOR UNKNOWN INDICATION
     Dosage: 3 DF, UNK
     Route: 048
  37. JAKAVI [Suspect]
     Active Substance: RUXOLITINIB
     Dosage: 5 MG, BID
     Route: 048
     Dates: start: 20150519, end: 20150601
  38. THYRADIN-S [Concomitant]
     Active Substance: LEVOTHYROXINE
     Dosage: UNK
     Route: 048
     Dates: start: 20160815, end: 20161016
  39. THYRADIN-S [Concomitant]
     Active Substance: LEVOTHYROXINE
     Dosage: 12.5 UG, UNK
     Route: 048
     Dates: start: 20161017
  40. PYLON [Concomitant]
     Indication: PRODUCT USED FOR UNKNOWN INDICATION
     Dosage: 3 G, UNK
     Route: 048
     Dates: start: 20150222, end: 20150305
  41. VEEN-F [Concomitant]
     Indication: PRODUCT USED FOR UNKNOWN INDICATION
     Dosage: 500 ML, UNK
     Route: 065
     Dates: start: 20150306, end: 20150306

REACTIONS (14)
  - C-reactive protein increased [Recovered/Resolved]
  - Serum ferritin increased [Not Recovered/Not Resolved]
  - Tonsillitis [Recovered/Resolved]
  - Constipation [Recovered/Resolved]
  - Pyrexia [Recovered/Resolved]
  - Nausea [Recovered/Resolved]
  - Oropharyngeal pain [Recovered/Resolved]
  - Stomatitis [Not Recovered/Not Resolved]
  - Oropharyngeal pain [Recovered/Resolved]
  - Bone marrow failure [Recovered/Resolved]
  - Insomnia [Not Recovered/Not Resolved]
  - Oropharyngeal pain [Recovered/Resolved]
  - Bone marrow failure [Recovered/Resolved]
  - Vertigo [Recovering/Resolving]

NARRATIVE: CASE EVENT DATE: 20141226
